FAERS Safety Report 10158118 (Version 1)
Quarter: 2014Q2

REPORT INFORMATION
  Report Type: Spontaneous
  Country: US (occurrence: US)
  Receive Date: 20140507
  Receipt Date: 20140507
  Transmission Date: 20141212
  Serious: Yes (Hospitalization)
  Sender: FDA-Public Use
  Company Number: US-BAYER-2014-065792

PATIENT
  Age: 28 Year
  Sex: Male

DRUGS (1)
  1. NAPROXEN SODIUM ({= 220 MG) [Suspect]
     Dosage: 320 DF, ONCE
     Route: 048

REACTIONS (12)
  - Sedation [Recovered/Resolved]
  - Lethargy [Recovered/Resolved]
  - Somnolence [Recovered/Resolved]
  - Hypotension [Recovered/Resolved]
  - Sinus tachycardia [Recovered/Resolved]
  - Encephalopathy [Recovered/Resolved]
  - Convulsion [Recovered/Resolved]
  - Anuria [Recovered/Resolved]
  - Polyuria [Recovered/Resolved]
  - Metabolic acidosis [Recovered/Resolved]
  - Intentional overdose [Recovered/Resolved]
  - Suicide attempt [Recovered/Resolved]
